FAERS Safety Report 7596250-6 (Version None)
Quarter: 2011Q3

REPORT INFORMATION
  Report Type: 
  Country: None (occurrence: None)
  Receive Date: 20110707
  Receipt Date: 20110622
  Transmission Date: 20111222
  Serious: Yes (Hospitalization, Disabling)
  Sender: FDA-Public Use
  Company Number: JP-GENENTECH-306075

PATIENT
  Sex: Male

DRUGS (15)
  1. FLUVASTATIN SODIUM [Concomitant]
     Indication: PRODUCT USED FOR UNKNOWN INDICATION
  2. TOCOPHEROL CONCENTRATE CAP [Concomitant]
  3. WARFARIN SODIUM [Concomitant]
     Indication: PRODUCT USED FOR UNKNOWN INDICATION
  4. PIRENOXINE [Concomitant]
     Indication: PRODUCT USED FOR UNKNOWN INDICATION
  5. MUCOSTA [Concomitant]
     Indication: PRODUCT USED FOR UNKNOWN INDICATION
  6. MOXIFLOXACIN HYDROCHLORIDE [Concomitant]
  7. INDAPAMIDE [Concomitant]
     Indication: PRODUCT USED FOR UNKNOWN INDICATION
  8. LOSARTAN POTASSIUM [Concomitant]
     Indication: PRODUCT USED FOR UNKNOWN INDICATION
  9. LANIRAPID [Concomitant]
     Indication: PRODUCT USED FOR UNKNOWN INDICATION
  10. RABEPRAZOLE SODIUM [Concomitant]
     Indication: PRODUCT USED FOR UNKNOWN INDICATION
  11. AVASTIN [Concomitant]
     Indication: PRODUCT USED FOR UNKNOWN INDICATION
  12. RANIBIZUMAB [Suspect]
     Indication: AGE-RELATED MACULAR DEGENERATION
     Dosage: 0.05 ML, UNK
     Route: 042
     Dates: start: 20090408
  13. VERTEPORFIN [Concomitant]
     Indication: PRODUCT USED FOR UNKNOWN INDICATION
     Dosage: UNK
     Dates: start: 20080901
  14. SELBEX [Concomitant]
     Indication: PRODUCT USED FOR UNKNOWN INDICATION
     Dosage: UNK
     Dates: start: 20090809, end: 20090812
  15. LEVOFLOXACIN [Concomitant]
     Indication: PRODUCT USED FOR UNKNOWN INDICATION
     Dosage: UNK
     Dates: start: 20090401, end: 20090401

REACTIONS (4)
  - VISUAL ACUITY REDUCED [None]
  - EYE OPERATION COMPLICATION [None]
  - RETINAL HAEMORRHAGE [None]
  - RETINAL DETACHMENT [None]
